FAERS Safety Report 9862209 (Version 1)
Quarter: 2014Q1

REPORT INFORMATION
  Report Type: Spontaneous
  Country: US (occurrence: US)
  Receive Date: 20140203
  Receipt Date: 20140203
  Transmission Date: 20141002
  Serious: Yes (Hospitalization)
  Sender: FDA-Public Use
  Company Number: US-BAYER-2014-017047

PATIENT
  Age: 20 Year
  Sex: Female
  Weight: 65.76 kg

DRUGS (11)
  1. YAZ [Suspect]
  2. FLUTICASONE [Concomitant]
     Dosage: UNK
     Route: 045
     Dates: start: 20100629
  3. VANIQA [Concomitant]
     Dosage: 13.9 %, UNK
     Route: 061
     Dates: start: 20100629
  4. LORAZEPAM [Concomitant]
     Dosage: 0.5 MG, UNK
     Route: 048
     Dates: start: 20100629
  5. PAROXETINE [Concomitant]
     Dosage: 20 MG, UNK
     Route: 048
     Dates: start: 20100629
  6. DARVOCET-N [Concomitant]
     Indication: WISDOM TEETH REMOVAL
     Route: 048
  7. AMOXIL [Concomitant]
     Indication: WISDOM TEETH REMOVAL
     Route: 048
  8. PREDNISONE [Concomitant]
     Route: 048
  9. PAXIL [Concomitant]
  10. LIDODERM [Concomitant]
  11. OXYCONTIN [Concomitant]

REACTIONS (1)
  - Pulmonary embolism [None]
